FAERS Safety Report 13531893 (Version 1)
Quarter: 2017Q2

REPORT INFORMATION
  Report Type: Spontaneous
  Country: BR (occurrence: BR)
  Receive Date: 20170510
  Receipt Date: 20170510
  Transmission Date: 20170830
  Serious: Yes (Other)
  Sender: FDA-Public Use
  Company Number: BR-ELI_LILLY_AND_COMPANY-BR201705001051

PATIENT
  Age: 71 Year
  Sex: Female

DRUGS (2)
  1. VICTORIN [Suspect]
     Active Substance: CEFPODOXIME PROXETIL
     Indication: PRODUCT USED FOR UNKNOWN INDICATION
     Dosage: UNK, UNKNOWN
     Route: 065
  2. HUMALOG [Suspect]
     Active Substance: INSULIN LISPRO
     Indication: PRODUCT USED FOR UNKNOWN INDICATION
     Dosage: UNK UNK, UNKNOWN
     Route: 065
     Dates: start: 1987

REACTIONS (5)
  - Dizziness [Unknown]
  - Depression [Unknown]
  - Dementia Alzheimer^s type [Unknown]
  - Drug resistance [None]
  - Blood glucose increased [Unknown]
